FAERS Safety Report 5900560-5 (Version None)
Quarter: 2008Q3

REPORT INFORMATION
  Report Type: 
  Country: None (occurrence: None)
  Receive Date: 20080926
  Receipt Date: 20080918
  Transmission Date: 20090109
  Serious: Yes (Other)
  Sender: FDA-Public Use
  Company Number: KR-B.I. PHARMACEUTICALS,INC./RIDGEFIELD-2008-DE-05634GL

PATIENT
  Age: 70 Year
  Sex: Male

DRUGS (2)
  1. TELMISARTAN [Suspect]
     Dosage: 80MG
     Route: 048
  2. TELMISARTAN [Suspect]
     Dosage: 40MG
     Route: 048

REACTIONS (5)
  - DERMATITIS [None]
  - SOMNOLENCE [None]
  - SYNCOPE [None]
  - TINNITUS [None]
  - VERTIGO POSITIONAL [None]
